FAERS Safety Report 9107126 (Version 2)
Quarter: 2013Q1

REPORT INFORMATION
  Report Type: Spontaneous
  Country: US (occurrence: US)
  Receive Date: 20130221
  Receipt Date: 20130311
  Transmission Date: 20140127
  Serious: Yes (Other)
  Sender: FDA-Public Use
  Company Number: US-WATSON-2013-02748

PATIENT
  Age: 17 Year
  Sex: Female

DRUGS (1)
  1. NEXT CHOICE [Suspect]
     Indication: PRODUCT USED FOR UNKNOWN INDICATION
     Dosage: UNK
     Route: 048
     Dates: start: 20130207, end: 20130207

REACTIONS (4)
  - Respiratory arrest [Unknown]
  - Convulsion [Unknown]
  - Sedation [Unknown]
  - Drug prescribing error [Unknown]
